FAERS Safety Report 9157029 (Version 1)
Quarter: 2013Q1

REPORT INFORMATION
  Report Type: Spontaneous
  Country: US (occurrence: None)
  Receive Date: 20130308
  Receipt Date: 20130308
  Transmission Date: 20140127
  Serious: Yes (Other)
  Sender: FDA-Public Use
  Company Number: None

PATIENT
  Age: 82 Year
  Sex: Male
  Weight: 74.84 kg

DRUGS (2)
  1. ALFUZOSIN [Suspect]
     Indication: POLLAKIURIA
     Dates: start: 20130128
  2. TAMSULOSIN [Suspect]
     Indication: POLLAKIURIA
     Dates: start: 20121220

REACTIONS (2)
  - Tremor [None]
  - Eye pruritus [None]
